FAERS Safety Report 7253850-0 (Version None)
Quarter: 2011Q1

REPORT INFORMATION
  Report Type: 
  Country: None (occurrence: None)
  Receive Date: 20110129
  Receipt Date: 20100414
  Transmission Date: 20110831
  Serious: No
  Sender: FDA-Public Use
  Company Number: US-ABBOTT-10P-163-0638572-00

PATIENT
  Sex: Female

DRUGS (12)
  1. SYNTHROID [Concomitant]
     Indication: PRODUCT USED FOR UNKNOWN INDICATION
  2. DILTIAZEM [Concomitant]
     Indication: PRODUCT USED FOR UNKNOWN INDICATION
     Dosage: 240/24 MG
  3. PRAVACHOL [Concomitant]
     Indication: PRODUCT USED FOR UNKNOWN INDICATION
  4. ARANESP [Concomitant]
     Indication: PRODUCT USED FOR UNKNOWN INDICATION
     Dosage: Q MONTH-2MONTHS-DEPENDS ON HGB LEVEL
  5. BENADRYL [Concomitant]
     Indication: INSOMNIA
  6. DIOVAN HCT [Concomitant]
     Indication: PRODUCT USED FOR UNKNOWN INDICATION
     Dosage: 320/25 MG
  7. VITAMIN D [Concomitant]
     Indication: PRODUCT USED FOR UNKNOWN INDICATION
     Route: 048
  8. CALCIUM WITH VITAMIN D [Concomitant]
     Indication: PRODUCT USED FOR UNKNOWN INDICATION
  9. ARAVA [Concomitant]
     Indication: PRODUCT USED FOR UNKNOWN INDICATION
  10. TYLENOL-500 [Concomitant]
     Indication: PRODUCT USED FOR UNKNOWN INDICATION
  11. HUMIRA [Suspect]
     Indication: RHEUMATOID ARTHRITIS
     Dates: start: 20100317
  12. ASA [Concomitant]
     Indication: PRODUCT USED FOR UNKNOWN INDICATION
     Route: 048

REACTIONS (3)
  - BLOOD PRESSURE INCREASED [None]
  - INJECTION SITE ERYTHEMA [None]
  - EXPOSURE TO COMMUNICABLE DISEASE [None]
